FAERS Safety Report 18756041 (Version 1)
Quarter: 2021Q1

REPORT INFORMATION
  Report Type: Spontaneous
  Country: US (occurrence: US)
  Receive Date: 20210115
  Receipt Date: 20210115
  Transmission Date: 20210419
  Serious: No
  Sender: FDA-Public Use
  Company Number: None

PATIENT
  Age: 36 Year
  Sex: Female

DRUGS (1)
  1. TALTZ [Suspect]
     Active Substance: IXEKIZUMAB
     Indication: PSORIASIS
     Dosage: ?          OTHER FREQUENCY:Q2WEEKSX5DOSES ;?
     Route: 058
     Dates: start: 202011

REACTIONS (2)
  - Product dose omission issue [None]
  - Device malfunction [None]

NARRATIVE: CASE EVENT DATE: 20201228
